FAERS Safety Report 20786508 (Version 1)
Quarter: 2022Q2

REPORT INFORMATION
  Report Type: Spontaneous
  Country: GB (occurrence: GB)
  Receive Date: 20220505
  Receipt Date: 20220505
  Transmission Date: 20220720
  Serious: Yes (Other)
  Sender: FDA-Public Use
  Company Number: GB-MHRA-TPP17897477C2235534YC1650872341552

PATIENT
  Age: 23 Year
  Sex: Female
  Weight: 66 kg

DRUGS (5)
  1. NITROFURANTOIN [Suspect]
     Active Substance: NITROFURANTOIN
     Indication: Ill-defined disorder
     Dosage: UNK
     Route: 065
     Dates: start: 20220425
  2. CEPHALEXIN [Concomitant]
     Active Substance: CEPHALEXIN
     Indication: Ill-defined disorder
     Dosage: UNK (TAKE ONE CAPSULE TWICE A DAY)
     Route: 065
     Dates: start: 20220307, end: 20220314
  3. DESOGESTREL [Concomitant]
     Active Substance: DESOGESTREL
     Indication: Ill-defined disorder
     Dosage: UNK (TAKE ONE EVERY DAY WITHOUT A BREAK(THIS IS THE ...)
     Route: 065
     Dates: start: 20210326
  4. NITROFURANTOIN [Concomitant]
     Active Substance: NITROFURANTOIN
     Indication: Ill-defined disorder
     Dosage: UNK (TAKE ONE CAPSULE TWICE DAILY)
     Route: 065
     Dates: start: 20220424
  5. NORETHINDRONE [Concomitant]
     Active Substance: NORETHINDRONE
     Indication: Ill-defined disorder
     Dosage: UNK (TAKE ONE THREE TIMES A DAY TO DELAY PERIOD)
     Route: 065
     Dates: start: 20220412

REACTIONS (3)
  - Lip swelling [Recovering/Resolving]
  - Throat tightness [Recovered/Resolved]
  - Urticaria [Recovered/Resolved]

NARRATIVE: CASE EVENT DATE: 20220425
